FAERS Safety Report 18465831 (Version 1)
Quarter: 2020Q4

REPORT INFORMATION
  Report Type: Spontaneous
  Country: US (occurrence: US)
  Receive Date: 20201104
  Receipt Date: 20201104
  Transmission Date: 20210114
  Serious: No
  Sender: FDA-Public Use
  Company Number: US-SA-2020SA307508

PATIENT

DRUGS (1)
  1. DUPIXENT [Suspect]
     Active Substance: DUPILUMAB
     Indication: NASAL POLYPS

REACTIONS (5)
  - Asthenia [Unknown]
  - Condition aggravated [Unknown]
  - Paraesthesia [Unknown]
  - Epstein-Barr virus antibody [Unknown]
  - Injection site pain [Unknown]
